FAERS Safety Report 10049434 (Version 2)
Quarter: 2014Q2

REPORT INFORMATION
  Report Type: Spontaneous
  Country: US (occurrence: US)
  Receive Date: 20140401
  Receipt Date: 20140513
  Transmission Date: 20141212
  Serious: Yes (Other)
  Sender: FDA-Public Use
  Company Number: US-JNJFOC-20140317200

PATIENT
  Sex: Female

DRUGS (3)
  1. XARELTO [Suspect]
     Indication: HEART RATE IRREGULAR
     Route: 048
     Dates: start: 2013
  2. XARELTO [Suspect]
     Indication: EMBOLISM VENOUS
     Route: 048
     Dates: start: 2013
  3. XARELTO [Suspect]
     Indication: HIP ARTHROPLASTY
     Route: 048
     Dates: start: 2013

REACTIONS (7)
  - Haemorrhage [Recovered/Resolved]
  - Haemorrhage [Recovered/Resolved]
  - Laceration [Recovered/Resolved]
  - Heart rate irregular [Unknown]
  - Cataract [Recovered/Resolved]
  - Increased tendency to bruise [Not Recovered/Not Resolved]
  - Eye haemorrhage [Not Recovered/Not Resolved]
